FAERS Safety Report 9483886 (Version 1)
Quarter: 2013Q3

REPORT INFORMATION
  Report Type: Spontaneous
  Country: US (occurrence: US)
  Receive Date: 20130828
  Receipt Date: 20130828
  Transmission Date: 20140515
  Serious: Yes (Other)
  Sender: FDA-Public Use
  Company Number: US-ELI_LILLY_AND_COMPANY-US201308006268

PATIENT
  Age: 52 Year
  Sex: Male

DRUGS (1)
  1. CYMBALTA [Suspect]
     Dosage: UNK, UNKNOWN
     Route: 065

REACTIONS (5)
  - Spinal column injury [Unknown]
  - Spinal cord injury [Unknown]
  - Suicidal ideation [Unknown]
  - Cardiac disorder [Unknown]
  - Intervertebral disc injury [Unknown]
